FAERS Safety Report 15328004 (Version 2)
Quarter: 2018Q3

REPORT INFORMATION
  Report Type: Report from Study
  Country: US (occurrence: US)
  Receive Date: 20180828
  Receipt Date: 20180905
  Transmission Date: 20181010
  Serious: Yes (Death, Hospitalization)
  Sender: FDA-Public Use
  Company Number: US-EXELIXIS-CABO-18015571

PATIENT
  Sex: Male

DRUGS (4)
  1. TEMSIROLIMUS [Suspect]
     Active Substance: TEMSIROLIMUS
     Indication: CLEAR CELL RENAL CELL CARCINOMA
     Dosage: UNK
     Dates: start: 201803
  2. CABOMETYX [Suspect]
     Active Substance: CABOZANTINIB S-MALATE
     Indication: RENAL CANCER
     Dosage: 60 MG, QD (MORNING WITHOUT FOOD)
     Route: 048
     Dates: start: 20180502
  3. AMLODIPINE [Concomitant]
     Active Substance: AMLODIPINE BESYLATE
  4. VITAMIN B12 [Concomitant]
     Active Substance: CYANOCOBALAMIN

REACTIONS (5)
  - Metastases to adrenals [Unknown]
  - Malignant neoplasm progression [Fatal]
  - Malnutrition [Unknown]
  - Metastases to liver [Unknown]
  - Metastases to lung [Unknown]

NARRATIVE: CASE EVENT DATE: 2018
